FAERS Safety Report 8289216-4 (Version None)
Quarter: 2012Q2

REPORT INFORMATION
  Report Type: 
  Country: None (occurrence: None)
  Receive Date: 20120417
  Receipt Date: 20120411
  Transmission Date: 20120825
  Serious: Yes (Other)
  Sender: FDA-Public Use
  Company Number: PHHY2011DK90578

PATIENT
  Sex: Male

DRUGS (6)
  1. ZOMETA [Suspect]
     Indication: HYPERCALCAEMIA
     Dosage: 4 MG, UNK
     Route: 042
     Dates: start: 20100121, end: 20100820
  2. POTASSIUM CHLORIDE [Concomitant]
  3. FUROSEMID ^DAK^ [Concomitant]
  4. PREDNISOLONE [Concomitant]
  5. ALENDRONATE SODIUM [Concomitant]
  6. ZOMETA [Suspect]
     Indication: OSTEOPOROSIS
     Dosage: 4 MG IV X 8
     Route: 042
     Dates: start: 20100126, end: 20100820

REACTIONS (2)
  - OSTEONECROSIS OF JAW [None]
  - PAIN IN JAW [None]
